FAERS Safety Report 21294806 (Version 2)
Quarter: 2022Q4

REPORT INFORMATION
  Report Type: Report from Study
  Country: KR (occurrence: KR)
  Receive Date: 20220905
  Receipt Date: 20221020
  Transmission Date: 20230113
  Serious: Yes (Other)
  Sender: FDA-Public Use
  Company Number: KR-NOVARTISPH-NVSC2022KR199533

PATIENT
  Age: 61 Year
  Sex: Female

DRUGS (1)
  1. BEOVU [Suspect]
     Active Substance: BROLUCIZUMAB-DBLL
     Indication: Neovascular age-related macular degeneration
     Dosage: 6 MG
     Route: 031
     Dates: start: 20220419

REACTIONS (1)
  - Idiopathic orbital inflammation [Recovered/Resolved]

NARRATIVE: CASE EVENT DATE: 20220517
